FAERS Safety Report 12551587 (Version 1)
Quarter: 2016Q3

REPORT INFORMATION
  Report Type: Spontaneous
  Country: US (occurrence: None)
  Receive Date: 20160712
  Receipt Date: 20160712
  Transmission Date: 20161109
  Serious: No
  Sender: FDA-Public Use
  Company Number: None

PATIENT
  Age: 47 Year
  Sex: Male
  Weight: 89.81 kg

DRUGS (1)
  1. VIIBRYD [Suspect]
     Active Substance: VILAZODONE HYDROCHLORIDE
     Indication: MAJOR DEPRESSION
     Dosage: IN THE MORNING
     Route: 048
     Dates: start: 20160101, end: 20160711

REACTIONS (3)
  - Musculoskeletal stiffness [None]
  - Pain in extremity [None]
  - Tendon pain [None]

NARRATIVE: CASE EVENT DATE: 20160710
